FAERS Safety Report 6934637-2 (Version None)
Quarter: 2010Q3

REPORT INFORMATION
  Report Type: 
  Country: None (occurrence: None)
  Receive Date: 20100820
  Receipt Date: 20100810
  Transmission Date: 20110219
  Serious: Yes (Other)
  Sender: FDA-Public Use
  Company Number: US-ABBOTT-10P-163-0663632-00

PATIENT
  Sex: Male

DRUGS (13)
  1. HUMIRA [Suspect]
     Indication: CROHN'S DISEASE
     Route: 058
     Dates: start: 20080101
  2. AZOTHIAPRINE [Concomitant]
     Indication: CROHN'S DISEASE
     Route: 048
  3. PENTASA [Concomitant]
     Indication: CROHN'S DISEASE
     Route: 048
  4. CLONAZEPAM [Concomitant]
     Indication: ANXIETY
     Dosage: 1 TABLET DAYTIME AS NEEDED, 2 AT BEDTIME
     Route: 048
  5. OXATRODINE [Concomitant]
     Indication: PRODUCT USED FOR UNKNOWN INDICATION
     Dosage: PATIENT SPELLED MEDICATION.
     Route: 048
  6. BUPROPION HCL [Concomitant]
     Indication: PRODUCT USED FOR UNKNOWN INDICATION
     Route: 048
  7. AMLODIPINE [Concomitant]
     Indication: PRODUCT USED FOR UNKNOWN INDICATION
     Route: 048
  8. LISINOPRIL [Concomitant]
     Indication: HYPERTENSION
     Route: 048
  9. ACIPHEX [Concomitant]
     Indication: PRODUCT USED FOR UNKNOWN INDICATION
     Route: 048
  10. ZYRTEC [Concomitant]
     Indication: PRODUCT USED FOR UNKNOWN INDICATION
     Route: 048
  11. GABAPENTIN [Concomitant]
     Indication: PRODUCT USED FOR UNKNOWN INDICATION
     Route: 048
  12. IMODIUM A-D [Concomitant]
     Indication: PRODUCT USED FOR UNKNOWN INDICATION
     Route: 048
  13. LORAZEPAM [Concomitant]
     Indication: PRODUCT USED FOR UNKNOWN INDICATION

REACTIONS (17)
  - ABDOMINAL DISTENSION [None]
  - ANXIETY [None]
  - ARTHRALGIA [None]
  - BLOOD PRESSURE INCREASED [None]
  - CAFE AU LAIT SPOTS [None]
  - CHEST DISCOMFORT [None]
  - DIARRHOEA [None]
  - DYSPNOEA [None]
  - HYPOAESTHESIA [None]
  - OEDEMA PERIPHERAL [None]
  - PANIC ATTACK [None]
  - PARAESTHESIA [None]
  - RECTAL HAEMORRHAGE [None]
  - RHINORRHOEA [None]
  - STRESS [None]
  - SUICIDE ATTEMPT [None]
  - VISUAL IMPAIRMENT [None]
